FAERS Safety Report 10555221 (Version 2)
Quarter: 2014Q4

REPORT INFORMATION
  Report Type: Report from Study
  Country: US (occurrence: US)
  Receive Date: 20141030
  Receipt Date: 20141030
  Transmission Date: 20150529
  Serious: Yes (Other)
  Sender: FDA-Public Use
  Company Number: US-BAYER-2014-141473

PATIENT
  Age: 69 Year
  Sex: Male

DRUGS (2)
  1. NEXAVAR [Suspect]
     Active Substance: SORAFENIB
     Indication: HEPATIC CANCER
     Dosage: 200 MG, QD
     Route: 048
     Dates: start: 20140919, end: 20141017
  2. NEXAVAR [Suspect]
     Active Substance: SORAFENIB
     Indication: HEPATIC CANCER
     Dosage: 400 MG, BID
     Route: 048
     Dates: start: 20140823, end: 20140905

REACTIONS (12)
  - Abdominal discomfort [None]
  - Fatigue [Not Recovered/Not Resolved]
  - Nausea [None]
  - Quality of life decreased [None]
  - Dizziness [Recovered/Resolved]
  - Asthenia [Recovered/Resolved]
  - Weight decreased [Not Recovered/Not Resolved]
  - Headache [None]
  - Decreased appetite [Recovered/Resolved]
  - Asthenia [Not Recovered/Not Resolved]
  - Anxiety [None]
  - Pain [Not Recovered/Not Resolved]

NARRATIVE: CASE EVENT DATE: 20140824
